FAERS Safety Report 19431243 (Version 1)
Quarter: 2021Q2

REPORT INFORMATION
  Report Type: Spontaneous
  Country: US (occurrence: US)
  Receive Date: 20210618
  Receipt Date: 20210618
  Transmission Date: 20210717
  Serious: No
  Sender: FDA-Public Use
  Company Number: US-ROCHE-2695505

PATIENT

DRUGS (1)
  1. ACTEMRA [Suspect]
     Active Substance: TOCILIZUMAB
     Indication: GIANT CELL ARTERITIS
     Route: 065

REACTIONS (1)
  - Epiploic appendagitis [Unknown]
